FAERS Safety Report 7758587-7 (Version None)
Quarter: 2011Q3

REPORT INFORMATION
  Report Type: 
  Country: None (occurrence: None)
  Receive Date: 20110919
  Receipt Date: 20110905
  Transmission Date: 20111222
  Serious: Yes (Other)
  Sender: FDA-Public Use
  Company Number: IE-ELI_LILLY_AND_COMPANY-IE201109001332

PATIENT
  Age: 28 Year
  Sex: Female

DRUGS (6)
  1. VITAMIN E                            /001105/ [Concomitant]
     Dosage: 5 DF, UNK
     Route: 048
     Dates: start: 20110817
  2. OLANZAPINE [Suspect]
     Indication: PSYCHOTIC DISORDER
     Dosage: 10 MG, QD
     Route: 048
     Dates: start: 20110817, end: 20110819
  3. VITAMINS NOS [Concomitant]
     Dosage: UNK
     Route: 048
     Dates: start: 20110814
  4. OLANZAPINE [Suspect]
     Dosage: 5 MG, BID
     Route: 048
     Dates: start: 20110820
  5. EVENING PRIMROSE OIL [Concomitant]
     Dosage: UNK
     Route: 048
     Dates: start: 20110811
  6. COD LIVER OIL [Concomitant]
     Dosage: UNK
     Route: 048
     Dates: start: 20110814

REACTIONS (4)
  - VOMITING [None]
  - SYNCOPE [None]
  - NAUSEA [None]
  - HYPOTENSION [None]
